FAERS Safety Report 9353978 (Version 1)
Quarter: 2013Q2

REPORT INFORMATION
  Report Type: Report from Study
  Country: JP (occurrence: JP)
  Receive Date: 20130618
  Receipt Date: 20130618
  Transmission Date: 20140414
  Serious: Yes (Hospitalization, Other)
  Sender: FDA-Public Use
  Company Number: JP-ABBOTT-13X-087-1104634-00

PATIENT
  Age: 63 Year
  Sex: Male
  Weight: 61.1 kg

DRUGS (4)
  1. LIPACREON [Suspect]
     Indication: PANCREATIC INSUFFICIENCY
     Dosage: SACHET
     Route: 048
     Dates: start: 20121116
  2. ESOMEPRAZOLE MAGNESIUM [Concomitant]
     Indication: PANCREATIC INSUFFICIENCY
  3. CAMOSTAT MESILATE [Concomitant]
     Indication: PANCREATIC INSUFFICIENCY
     Route: 048
     Dates: start: 20121118
  4. CAMOSTAT MESILATE [Concomitant]
     Indication: PANCREATIC INSUFFICIENCY

REACTIONS (2)
  - Hepatic cirrhosis [Unknown]
  - Ascites [Recovered/Resolved]
